FAERS Safety Report 7960808-2 (Version None)
Quarter: 2011Q4

REPORT INFORMATION
  Report Type: 
  Country: None (occurrence: None)
  Receive Date: 20111207
  Receipt Date: 20111202
  Transmission Date: 20120403
  Serious: Yes (Hospitalization, Other)
  Sender: FDA-Public Use
  Company Number: US-BIOGENIDEC-2008BI012708

PATIENT
  Age: 66 Year
  Sex: Female

DRUGS (3)
  1. AVONEX [Suspect]
     Indication: MULTIPLE SCLEROSIS
     Route: 030
  2. AVONEX [Suspect]
     Route: 030
     Dates: start: 20030801, end: 20080401
  3. AVONEX [Suspect]
     Route: 030
     Dates: start: 19971101, end: 20030801

REACTIONS (2)
  - COLON CANCER STAGE III [None]
  - COLON CANCER METASTATIC [None]
